FAERS Safety Report 9168063 (Version 2)
Quarter: 2013Q4

REPORT INFORMATION
  Report Type: Spontaneous
  Country: GB (occurrence: None)
  Receive Date: 20130305
  Receipt Date: 20131008
  Transmission Date: 20140711
  Serious: Yes (Other)
  Sender: FDA-Public Use
  Company Number: AUR-APL-2013-01808

PATIENT
  Age: 51 Year
  Sex: Female

DRUGS (3)
  1. FLUOXETINE [Suspect]
     Indication: ANXIETY
     Dosage: 2 DOSAGE FORMS (2 DOSAGE FORMS, 1 IN 1 D), ORAL
     Route: 048
     Dates: start: 20121008, end: 20121105
  2. FLUOXETINE [Suspect]
     Indication: DEPRESSION
     Dosage: 2 DOSAGE FORMS (2 DOSAGE FORMS, 1 IN 1 D), ORAL
     Route: 048
     Dates: start: 20121008, end: 20121105
  3. ASPIRIN (ACETYLSALICYLIC ACID) [Concomitant]

REACTIONS (1)
  - Visual field defect [None]
